FAERS Safety Report 6685999-5 (Version None)
Quarter: 2010Q2

REPORT INFORMATION
  Report Type: 
  Country: None (occurrence: None)
  Receive Date: 20100415
  Receipt Date: 20100415
  Transmission Date: 20101027
  Serious: Yes (Hospitalization)
  Sender: FDA-Public Use
  Company Number: None

PATIENT
  Age: 73 Year
  Weight: 90.1751 kg

DRUGS (16)
  1. GEMCITABINE HCL [Suspect]
     Indication: SPINDLE CELL SARCOMA
     Dosage: 900MG/M2, 21 DAY INT, IV
     Route: 042
     Dates: start: 20100224
  2. DOCETAXEL [Suspect]
     Dosage: 100MG/M2, 21 DAY INT, IV
     Route: 042
     Dates: start: 20100303
  3. LOTREL [Concomitant]
  4. ATENOLOL [Concomitant]
  5. LIPITOR [Concomitant]
  6. BACLOFEN [Concomitant]
  7. DEXAMETHASONE [Concomitant]
  8. DOXEPIN HCL [Concomitant]
  9. FINASTERIDE [Concomitant]
  10. FLUTICASONE PROPIONATE [Concomitant]
  11. LEVOTHYROXINE [Concomitant]
  12. ZOFRAN [Concomitant]
  13. COMPAZINE [Concomitant]
  14. ALDACTAZIDE [Concomitant]
  15. RESTORIL [Concomitant]
  16. ATIVAN [Concomitant]

REACTIONS (1)
  - EPISTAXIS [None]
